FAERS Safety Report 12125820 (Version 3)
Quarter: 2016Q1

REPORT INFORMATION
  Report Type: Spontaneous
  Country: GB (occurrence: GB)
  Receive Date: 20160229
  Receipt Date: 20160329
  Transmission Date: 20160526
  Serious: Yes (Disabling)
  Sender: FDA-Public Use
  Company Number: GB-ROCHE-1717825

PATIENT
  Sex: Male

DRUGS (2)
  1. AVASTIN [Suspect]
     Active Substance: BEVACIZUMAB
     Indication: PRODUCT USED FOR UNKNOWN INDICATION
     Route: 065
  2. LOMUSTINE. [Concomitant]
     Active Substance: LOMUSTINE

REACTIONS (10)
  - Back pain [Unknown]
  - Lacrimation increased [Unknown]
  - Abscess neck [Unknown]
  - Slow speech [Unknown]
  - Injury [Unknown]
  - Foreign body sensation in eyes [Unknown]
  - Hordeolum [Unknown]
  - Mobility decreased [Unknown]
  - Fatigue [Unknown]
  - Diarrhoea [Unknown]
